FAERS Safety Report 13071399 (Version 1)
Quarter: 2016Q4

REPORT INFORMATION
  Report Type: Spontaneous
  Country: US (occurrence: US)
  Receive Date: 20161229
  Receipt Date: 20161229
  Transmission Date: 20170207
  Serious: Yes (Hospitalization)
  Sender: FDA-Public Use
  Company Number: US-BAYER-2016-240917

PATIENT
  Age: 69 Year
  Sex: Female

DRUGS (18)
  1. WELLBUTRIN [Concomitant]
     Active Substance: BUPROPION HYDROCHLORIDE
  2. TROSPIUM [Concomitant]
     Active Substance: TROSPIUM
  3. PRILOSEC [Concomitant]
     Active Substance: OMEPRAZOLE MAGNESIUM
  4. SPIRIVA [Concomitant]
     Active Substance: TIOTROPIUM BROMIDE MONOHYDRATE
  5. COMBIVENT [Concomitant]
     Active Substance: ALBUTEROL SULFATE\IPRATROPIUM BROMIDE
  6. EXCEDRIN [ACETYLSALICYLIC ACID,CAFFEINE,PARACETAMOL,SALICYLAMIDE] [Concomitant]
     Active Substance: ACETAMINOPHEN\ASPIRIN\CAFFEINE
  7. CLONAZEPAM. [Concomitant]
     Active Substance: CLONAZEPAM
  8. ATIVAN [Concomitant]
     Active Substance: LORAZEPAM
  9. OXYGEN. [Concomitant]
     Active Substance: OXYGEN
  10. PRAVASTATIN. [Concomitant]
     Active Substance: PRAVASTATIN
  11. SYMBICORT [Concomitant]
     Active Substance: BUDESONIDE\FORMOTEROL FUMARATE DIHYDRATE
  12. VITAMIN D [Concomitant]
     Active Substance: CHOLECALCIFEROL
  13. BETASERON [Suspect]
     Active Substance: INTERFERON BETA-1B
     Indication: MULTIPLE SCLEROSIS
     Dosage: 0.25 MG, UNK
     Dates: start: 1993
  14. NUVIGIL [Concomitant]
     Active Substance: ARMODAFINIL
  15. LISINOPRIL. [Concomitant]
     Active Substance: LISINOPRIL
  16. CALCIUM [Concomitant]
     Active Substance: CALCIUM
  17. RESTORIL [Concomitant]
     Active Substance: TEMAZEPAM
  18. LEXAPRO [Concomitant]
     Active Substance: ESCITALOPRAM OXALATE

REACTIONS (5)
  - Lung disorder [None]
  - Depression [None]
  - Injection site reaction [None]
  - Injection site pruritus [None]
  - Injection site erythema [None]
